FAERS Safety Report 9494746 (Version 2)
Quarter: 2013Q3

REPORT INFORMATION
  Report Type: Spontaneous
  Country: US (occurrence: US)
  Receive Date: 20130903
  Receipt Date: 20130927
  Transmission Date: 20140515
  Serious: Yes (Hospitalization, Other)
  Sender: FDA-Public Use
  Company Number: US-PFIZER INC-2013249504

PATIENT
  Age: 76 Year
  Sex: Male
  Weight: 63.49 kg

DRUGS (5)
  1. SUTENT [Suspect]
     Dosage: 50 MG, CYCLIC (DAILY FOR 28 DAYS ON AND 14 DAYS OFF)
     Dates: start: 20130816
  2. SUTENT [Suspect]
     Dosage: UNK
     Dates: end: 20130910
  3. MELOXICAM [Concomitant]
     Dosage: UNK
  4. ASPIRIN [Concomitant]
     Dosage: 81 MG, UNK
  5. LOSARTAN [Concomitant]
     Dosage: UNK

REACTIONS (7)
  - Dehydration [Unknown]
  - Pleural effusion [Unknown]
  - Fatigue [Unknown]
  - Dysgeusia [Unknown]
  - Yellow skin [Unknown]
  - Diarrhoea [Unknown]
  - Decreased appetite [Unknown]
